FAERS Safety Report 5843067-6 (Version None)
Quarter: 2008Q3

REPORT INFORMATION
  Report Type: 
  Country: None (occurrence: None)
  Receive Date: 20080811
  Receipt Date: 20080804
  Transmission Date: 20090109
  Serious: Yes (Death, Other)
  Sender: FDA-Public Use
  Company Number: 163-21880-08031740

PATIENT
  Sex: Male

DRUGS (2)
  1. REVLIMID [Suspect]
     Indication: MULTIPLE MYELOMA
     Dosage: 25 MG, DAILY, ORAL; 10 MG, 1 IN 1 D, ORAL
     Route: 048
     Dates: start: 20070809, end: 20070801
  2. REVLIMID [Suspect]
     Indication: MULTIPLE MYELOMA
     Dosage: 25 MG, DAILY, ORAL; 10 MG, 1 IN 1 D, ORAL
     Route: 048
     Dates: start: 20070824

REACTIONS (2)
  - BONE MARROW FAILURE [None]
  - DISEASE PROGRESSION [None]
